FAERS Safety Report 7515237-2 (Version None)
Quarter: 2011Q2

REPORT INFORMATION
  Report Type: 
  Country: None (occurrence: None)
  Receive Date: 20110425
  Receipt Date: 20100129
  Transmission Date: 20111010
  Serious: Yes (Other)
  Sender: FDA-Public Use
  Company Number: MC201000034

PATIENT
  Age: 74 Year
  Sex: Male

DRUGS (1)
  1. ANGIOMAX [Suspect]
     Indication: ANGIOPLASTY
     Dosage: 5 MG/ML, BOLUS, INTRAVENOUS
     Route: 042

REACTIONS (1)
  - DRUG DOSE OMISSION [None]
